FAERS Safety Report 6705799-7 (Version None)
Quarter: 2010Q2

REPORT INFORMATION
  Report Type: 
  Country: None (occurrence: None)
  Receive Date: 20100503
  Receipt Date: 20100423
  Transmission Date: 20101027
  Serious: Yes (Other)
  Sender: FDA-Public Use
  Company Number: US-JNJFOC-20100407640

PATIENT
  Age: 37 Year
  Sex: Male

DRUGS (2)
  1. LOPERAMIDE [Suspect]
     Indication: DIARRHOEA
     Route: 048
  2. ALOSETRON [Suspect]
     Indication: DIARRHOEA

REACTIONS (2)
  - COLITIS ISCHAEMIC [None]
  - INTESTINAL OBSTRUCTION [None]
